FAERS Safety Report 16925904 (Version 4)
Quarter: 2020Q1

REPORT INFORMATION
  Report Type: Report from Study
  Country: FR (occurrence: FR)
  Receive Date: 20191016
  Receipt Date: 20200319
  Transmission Date: 20200409
  Serious: Yes (Hospitalization, Other)
  Sender: FDA-Public Use
  Company Number: FR-BRISTOL-MYERS SQUIBB COMPANY-BMS-2019-097888

PATIENT
  Age: 58 Year
  Sex: Male
  Weight: 53.3 kg

DRUGS (4)
  1. PREVNAR 13 [Concomitant]
     Active Substance: PNEUMOCOCCAL 13-VALENT CONJUGATE VACCINE
     Indication: PNEUMOCOCCAL INFECTION
     Dosage: UNK
     Route: 065
     Dates: start: 20190218
  2. NIVOLUMAB [Suspect]
     Active Substance: NIVOLUMAB
     Indication: SKIN CANCER
     Dosage: 240 MILLIGRAM
     Route: 042
     Dates: start: 20181113, end: 20190730
  3. KEPPRA [Concomitant]
     Active Substance: LEVETIRACETAM
     Indication: EPILEPSY
     Dosage: 1 GRAM, QD
     Route: 048
     Dates: start: 20190210
  4. PNEUMO 23 [Concomitant]
     Active Substance: PNEUMOCOCCAL VACCINE, POLYVALENT 23
     Indication: PNEUMOCOCCAL INFECTION
     Dosage: UNK
     Route: 065
     Dates: start: 20190418

REACTIONS (2)
  - Epilepsy [Recovered/Resolved]
  - Brain abscess [Unknown]

NARRATIVE: CASE EVENT DATE: 20190207
